FAERS Safety Report 26181107 (Version 2)
Quarter: 2025Q4

REPORT INFORMATION
  Report Type: Report from Study
  Country: AU (occurrence: AU)
  Receive Date: 20251221
  Receipt Date: 20251226
  Transmission Date: 20260118
  Serious: Yes (Hospitalization)
  Sender: ABBVIE
  Company Number: AU-ABBVIE-6594775

PATIENT
  Age: 68 Year
  Sex: Female

DRUGS (3)
  1. CARBIDOPA\LEVODOPA [Suspect]
     Active Substance: CARBIDOPA\LEVODOPA
     Indication: Parkinson^s disease
     Route: 050
     Dates: start: 20250815
  2. CARBIDOPA\LEVODOPA [Suspect]
     Active Substance: CARBIDOPA\LEVODOPA
  3. BENSERAZIDE HYDROCHLORIDE\LEVODOPA [Concomitant]
     Active Substance: BENSERAZIDE HYDROCHLORIDE\LEVODOPA
     Indication: Product used for unknown indication

REACTIONS (25)
  - Rib fracture [Not Recovered/Not Resolved]
  - Stoma site infection [Unknown]
  - Constipation [Not Recovered/Not Resolved]
  - Device occlusion [Unknown]
  - Fall [Recovering/Resolving]
  - Incorrect route of product administration [Unknown]
  - Constipation [Recovered/Resolved]
  - Back pain [Unknown]
  - Stoma site erythema [Unknown]
  - Stoma site discharge [Recovered/Resolved with Sequelae]
  - Stoma site infection [Unknown]
  - Dyskinesia [Unknown]
  - Freezing phenomenon [Recovering/Resolving]
  - Therapeutic response shortened [Unknown]
  - Stress [Unknown]
  - Anxiety [Unknown]
  - Chest pain [Recovered/Resolved with Sequelae]
  - Limb injury [Recovering/Resolving]
  - Blood pressure fluctuation [Unknown]
  - Nocturia [Unknown]
  - Urinary incontinence [Unknown]
  - Gastrointestinal motility disorder [Recovering/Resolving]
  - Musculoskeletal disorder [Unknown]
  - Balance disorder [Unknown]
  - Device occlusion [Not Recovered/Not Resolved]

NARRATIVE: CASE EVENT DATE: 20250101
